FAERS Safety Report 8520766 (Version 2)
Quarter: 2012Q4

REPORT INFORMATION
  Report Type: 
  Country: US (occurrence: US)
  Receive Date: 20120418
  Receipt Date: 20121120
  Transmission Date: 20130627
  Serious: No
  Sender: FDA-Public Use
  Company Number: US-ASTRAZENECA-2012SE00080

PATIENT
  Age: 81 Year
  Sex: Female
  Weight: 68.9 kg

DRUGS (4)
  1. NEXIUM [Suspect]
     Route: 048
     Dates: start: 2009, end: 20120120
  2. GABAPENTIN [Concomitant]
  3. TOPROL [Concomitant]
  4. ALENDRONATE [Concomitant]

REACTIONS (7)
  - Barrett^s oesophagus [Unknown]
  - Gastrooesophageal reflux disease [Unknown]
  - Gastroenteritis [Unknown]
  - Hiatus hernia [Unknown]
  - Gastric disorder [Unknown]
  - Cough [Not Recovered/Not Resolved]
  - Inappropriate schedule of drug administration [Unknown]
